FAERS Safety Report 4602302-2 (Version None)
Quarter: 2005Q2

REPORT INFORMATION
  Report Type: 
  Country: None (occurrence: None)
  Receive Date: 20050215
  Receipt Date: 20041101
  Transmission Date: 20051028
  Serious: Yes (Other)
  Sender: FDA-Public Use
  Company Number: 380390

PATIENT
  Age: 50 Year
  Sex: Female
  Weight: 51.7 kg

DRUGS (4)
  1. PEGASYS [Suspect]
     Indication: HEPATITIS C VIRUS
     Dosage: 80 MCG 1 PER WEEK SUBCUTANEOUS
     Route: 058
     Dates: start: 20040407, end: 20040407
  2. COPEGUS [Suspect]
     Indication: HEPATITIS C VIRUS
     Dosage: 400 MG 2 PER DAY, ORAL
     Route: 048
     Dates: start: 20040407, end: 20040407
  3. SULFASALAZINE [Concomitant]
  4. THYROID DRUG NOS [Concomitant]

REACTIONS (4)
  - ANGIONEUROTIC OEDEMA [None]
  - PRURITUS [None]
  - SWELLING FACE [None]
  - URTICARIA [None]
